FAERS Safety Report 26043479 (Version 1)
Quarter: 2025Q4

REPORT INFORMATION
  Report Type: Spontaneous
  Country: US (occurrence: US)
  Receive Date: 20251113
  Receipt Date: 20251113
  Transmission Date: 20260117
  Serious: Yes (Other)
  Sender: Kenvue
  Company Number: US-KENVUE-20251102681

PATIENT

DRUGS (1)
  1. DIPHENHYDRAMINE HYDROCHLORIDE [Suspect]
     Active Substance: DIPHENHYDRAMINE HYDROCHLORIDE
     Indication: Product used for unknown indication
     Dosage: RANGE OF INGESTION WAS 375-1500MG
     Route: 048

REACTIONS (8)
  - Mydriasis [Recovered/Resolved]
  - Delirium [Recovered/Resolved]
  - Tachycardia [Recovered/Resolved]
  - Urinary retention [Recovered/Resolved]
  - Agitation [Recovered/Resolved]
  - Hallucination [Recovered/Resolved]
  - Overdose [Unknown]
  - Generalised tonic-clonic seizure [Recovered/Resolved]
